FAERS Safety Report 7631963-9 (Version None)
Quarter: 2011Q3

REPORT INFORMATION
  Report Type: 
  Country: None (occurrence: None)
  Receive Date: 20110725
  Receipt Date: 20110516
  Transmission Date: 20111222
  Serious: Yes (Other)
  Sender: FDA-Public Use
  Company Number: US-BRISTOL-MYERS SQUIBB COMPANY-15750458

PATIENT
  Age: 89 Year
  Sex: Male
  Weight: 75 kg

DRUGS (9)
  1. COUMADIN [Suspect]
     Indication: ATRIAL FIBRILLATION
     Dosage: COUMADIN IS COUMADIN 7.5 MG 2 DAYS A WEEK AND COUMADIN 5 MG THE REST OF THE WEEK
  2. METOPROLOL TARTRATE [Concomitant]
     Dosage: 1 DF=25 UNITYS NOS
  3. ALENDRONATE SODIUM [Concomitant]
  4. PREDNISONE [Concomitant]
  5. LANSOPRAZOLE [Concomitant]
  6. DIGOXIN [Concomitant]
  7. LIPITOR [Concomitant]
  8. PYRIDOSTIGMINE BROMIDE [Concomitant]
  9. EXELON [Concomitant]

REACTIONS (1)
  - INTERNATIONAL NORMALISED RATIO DECREASED [None]
